FAERS Safety Report 7403842-3 (Version None)
Quarter: 2011Q2

REPORT INFORMATION
  Report Type: 
  Country: None (occurrence: None)
  Receive Date: 20110408
  Receipt Date: 20110330
  Transmission Date: 20111010
  Serious: Yes (Other)
  Sender: FDA-Public Use
  Company Number: US-ASTRAZENECA-2008UW27064

PATIENT
  Age: 70 Year
  Sex: Female
  Weight: 56.2 kg

DRUGS (5)
  1. ZYRTEC [Concomitant]
  2. LANOXIN [Concomitant]
  3. CRESTOR [Suspect]
     Indication: HYPERCHOLESTEROLAEMIA
     Route: 048
     Dates: start: 20100101, end: 20110305
  4. SYMBICORT [Concomitant]
  5. DILTIAZEM [Concomitant]

REACTIONS (6)
  - RASH [None]
  - RASH GENERALISED [None]
  - COUGH [None]
  - EPISTAXIS [None]
  - DIABETES MELLITUS [None]
  - THYROID DISORDER [None]
